FAERS Safety Report 8183120-8 (Version None)
Quarter: 2012Q1

REPORT INFORMATION
  Report Type: 
  Country: None (occurrence: None)
  Receive Date: 20120201
  Receipt Date: 20111014
  Transmission Date: 20120608
  Serious: Yes (Other)
  Sender: FDA-Public Use
  Company Number: 304963USA

PATIENT
  Sex: Female

DRUGS (1)
  1. LEVETIRACETAM [Suspect]
     Dosage: (500 MG)

REACTIONS (3)
  - DRUG INEFFECTIVE [None]
  - CONVULSION [None]
  - PRODUCT SUBSTITUTION ISSUE [None]
